FAERS Safety Report 6581351-1 (Version None)
Quarter: 2010Q1

REPORT INFORMATION
  Report Type: 
  Country: None (occurrence: None)
  Receive Date: 20100215
  Receipt Date: 20100203
  Transmission Date: 20100710
  Serious: Yes (Other)
  Sender: FDA-Public Use
  Company Number: US-ALLERGAN-1001858US

PATIENT
  Age: 31 Year
  Sex: Female

DRUGS (5)
  1. ELESTAT [Suspect]
     Indication: DRY EYE
  2. ELESTAT [Suspect]
     Indication: CONJUNCTIVITIS ALLERGIC
  3. METOCLOPRAMIDE [Concomitant]
     Indication: GASTROOESOPHAGEAL REFLUX DISEASE
  4. LEVOTHYROXINE SODIUM [Concomitant]
     Indication: HYPOTHYROIDISM
  5. ORAL CONTRACEPTIVE NOS [Concomitant]

REACTIONS (12)
  - ANAPHYLACTIC REACTION [None]
  - CHEST DISCOMFORT [None]
  - CORNEAL ABRASION [None]
  - DYSPNOEA [None]
  - EYE IRRITATION [None]
  - EYE PAIN [None]
  - FLUSHING [None]
  - OCULAR DISCOMFORT [None]
  - OCULAR HYPERAEMIA [None]
  - PRURITUS GENERALISED [None]
  - SWELLING [None]
  - THROAT TIGHTNESS [None]
